FAERS Safety Report 12244803 (Version 1)
Quarter: 2016Q2

REPORT INFORMATION
  Report Type: Spontaneous
  Country: CZ (occurrence: CZ)
  Receive Date: 20160407
  Receipt Date: 20160407
  Transmission Date: 20160815
  Serious: Yes (Hospitalization)
  Sender: FDA-Public Use
  Company Number: CZ-ROCHE-1738395

PATIENT
  Age: 1 Month
  Sex: Female

DRUGS (10)
  1. CYMEVENE [Suspect]
     Active Substance: GANCICLOVIR
     Indication: CYTOMEGALOVIRUS INFECTION
     Route: 042
     Dates: start: 20160128, end: 20160309
  2. KIOVIG [Concomitant]
     Active Substance: HUMAN IMMUNOGLOBULIN G
     Indication: IMMUNODEFICIENCY
     Route: 065
  3. ACIDUM FOLICUM [Concomitant]
     Active Substance: FOLIC ACID
     Route: 065
  4. VIGANTOL [Concomitant]
     Route: 065
  5. SAB SIMPLEX [Concomitant]
     Route: 065
  6. AMPICILLINUM [Concomitant]
     Indication: ANTIBIOTIC THERAPY
     Route: 065
  7. GENTAMICIN. [Concomitant]
     Active Substance: GENTAMICIN
     Indication: ANTIBIOTIC THERAPY
     Route: 065
  8. KANAVIT (CZECH REPUBLIC) [Concomitant]
     Route: 065
  9. CEFTAZIDIM [Concomitant]
     Active Substance: CEFTAZIDIME
     Route: 065
  10. ENTEROL (CZECH REPUBLIC) [Concomitant]
     Route: 065

REACTIONS (6)
  - Alopecia [Recovered/Resolved]
  - Leukopenia [Recovered/Resolved]
  - Diarrhoea [Recovered/Resolved]
  - Thrombocytopenia [Recovered/Resolved]
  - Neutropenia [Recovered/Resolved]
  - Anaemia [Recovered/Resolved]

NARRATIVE: CASE EVENT DATE: 20160302
